FAERS Safety Report 17455557 (Version 1)
Quarter: 2020Q1

REPORT INFORMATION
  Report Type: Spontaneous
  Country: US (occurrence: US)
  Receive Date: 20200212
  Receipt Date: 20200212
  Transmission Date: 20200409
  Serious: No
  Sender: FDA-Public Use
  Company Number: None

PATIENT
  Age: 60 Year
  Sex: Male

DRUGS (2)
  1. VEMLIDY [Suspect]
     Active Substance: TENOFOVIR ALAFENAMIDE FUMARATE
     Indication: CHRONIC HEPATITIS B
     Route: 048
     Dates: start: 20191116
  2. VALGANCICLOVIR 450MG TABS QUALITEST PHA RMACEUTICALS [Suspect]
     Active Substance: VALGANCICLOVIR
     Indication: CHRONIC HEPATITIS B
     Route: 048
     Dates: start: 20191116

REACTIONS (1)
  - Hepatic failure [None]
